FAERS Safety Report 15131258 (Version 1)
Quarter: 2018Q3

REPORT INFORMATION
  Report Type: Spontaneous
  Country: FR (occurrence: FR)
  Receive Date: 20180711
  Receipt Date: 20180711
  Transmission Date: 20181010
  Serious: Yes (Other)
  Sender: FDA-Public Use
  Company Number: FR-SA-2018SA110433

PATIENT
  Age: 71 Year
  Sex: Male

DRUGS (2)
  1. AMOXICILLIN. [Concomitant]
     Active Substance: AMOXICILLIN
     Indication: STREPTOCOCCAL INFECTION
     Dosage: 9 G,QD
     Route: 048
     Dates: start: 20180203, end: 20180427
  2. RIFAMPICIN [Suspect]
     Active Substance: RIFAMPIN
     Indication: STREPTOCOCCAL INFECTION
     Dosage: 1200 MG,QD
     Route: 048
     Dates: start: 20180209, end: 20180315

REACTIONS (1)
  - Hepatocellular injury [Recovered/Resolved]

NARRATIVE: CASE EVENT DATE: 20180312
